FAERS Safety Report 11238391 (Version 2)
Quarter: 2015Q4

REPORT INFORMATION
  Report Type: Spontaneous
  Country: US (occurrence: US)
  Receive Date: 20150704
  Receipt Date: 20151013
  Transmission Date: 20160304
  Serious: Yes (Hospitalization, Other)
  Sender: FDA-Public Use
  Company Number: US-CELGENE-USA-2015065453

PATIENT
  Age: 65 Year
  Sex: Male
  Weight: 104 kg

DRUGS (3)
  1. DEXAMETHASONE. [Suspect]
     Active Substance: DEXAMETHASONE
     Indication: PLASMA CELL MYELOMA RECURRENT
     Route: 065
  2. REVLIMID [Suspect]
     Active Substance: LENALIDOMIDE
     Indication: PLASMA CELL MYELOMA RECURRENT
     Route: 048
  3. SAR650984 [Suspect]
     Active Substance: ISATUXIMAB
     Indication: PLASMA CELL MYELOMA RECURRENT
     Route: 065

REACTIONS (2)
  - Mental status changes [Unknown]
  - Mental status changes [Recovering/Resolving]

NARRATIVE: CASE EVENT DATE: 20150511
